FAERS Safety Report 4988727-4 (Version None)
Quarter: 2006Q2

REPORT INFORMATION
  Report Type: 
  Country: None (occurrence: None)
  Receive Date: 20060502
  Receipt Date: 20051026
  Transmission Date: 20061013
  Serious: Yes (Hospitalization, Disabling)
  Sender: FDA-Public Use
  Company Number: US-MERCK-0510USA09172

PATIENT
  Age: 41 Year
  Sex: Male
  Weight: 100 kg

DRUGS (11)
  1. VIOXX [Suspect]
     Indication: ARTHRALGIA
     Route: 048
     Dates: start: 19990101, end: 20040924
  2. VIOXX [Suspect]
     Route: 048
     Dates: start: 19990101, end: 20040924
  3. ASPIRIN [Concomitant]
     Route: 065
  4. PLAVIX [Concomitant]
     Indication: ANTICOAGULANT THERAPY
     Route: 065
     Dates: start: 20000101, end: 20050101
  5. TRICOR [Concomitant]
     Indication: CARDIAC DISORDER
     Route: 065
     Dates: start: 20000101, end: 20050101
  6. TRICOR [Concomitant]
     Indication: BLOOD CHOLESTEROL
     Route: 065
     Dates: start: 20000101, end: 20050101
  7. VIAGRA [Concomitant]
     Route: 065
  8. CIALIS [Concomitant]
     Route: 065
  9. NEXIUM [Concomitant]
     Indication: GASTROOESOPHAGEAL REFLUX DISEASE
     Route: 065
  10. ADVIL [Concomitant]
     Indication: PAIN
     Route: 065
  11. TYLENOL (CAPLET) [Concomitant]
     Indication: PAIN
     Route: 065

REACTIONS (11)
  - BLOOD CHOLESTEROL INCREASED [None]
  - CHEST PAIN [None]
  - DYSPEPSIA [None]
  - EPISTAXIS [None]
  - HEADACHE [None]
  - HYPERSENSITIVITY [None]
  - MUSCULOSKELETAL CHEST PAIN [None]
  - MYOCARDIAL INFARCTION [None]
  - MYOCARDIAL ISCHAEMIA [None]
  - OVERDOSE [None]
  - REFLUX OESOPHAGITIS [None]
